FAERS Safety Report 15370883 (Version 2)
Quarter: 2018Q3

REPORT INFORMATION
  Report Type: Spontaneous
  Country: DE (occurrence: DE)
  Receive Date: 20180911
  Receipt Date: 20180914
  Transmission Date: 20181010
  Serious: Yes (Life-Threatening, Hospitalization, Other)
  Sender: FDA-Public Use
  Company Number: DE-PFIZER INC-2018362826

PATIENT
  Age: 1 Day
  Sex: Male
  Weight: 2.34 kg

DRUGS (3)
  1. OXYGEN. [Suspect]
     Active Substance: OXYGEN
     Indication: PULMONARY HYPERTENSION
     Dosage: HIGH?FREQUENCY OSCILLATION (MEAN AIRWAY PRESSURE 15 CMH2O, FRACTION OF INSPIRED OXYGEN [FIO2]
  2. SILDENAFIL CITRATE. [Suspect]
     Active Substance: SILDENAFIL CITRATE
     Indication: PULMONARY HYPERTENSION
     Dosage: 1.6 MG/KG/DAY ADMINISTERED CONTINUOUSLY
     Route: 042
  3. NITRIC OXIDE. [Suspect]
     Active Substance: NITRIC OXIDE
     Indication: PULMONARY HYPERTENSION
     Dosage: INHALED NITRIC OXIDE (20 PPM)

REACTIONS (1)
  - Drug ineffective [Recovered/Resolved]
